FAERS Safety Report 22147926 (Version 1)
Quarter: 2023Q1

REPORT INFORMATION
  Report Type: Spontaneous
  Country: NL (occurrence: NL)
  Receive Date: 20230328
  Receipt Date: 20230328
  Transmission Date: 20230417
  Serious: Yes (Death, Life-Threatening, Hospitalization)
  Sender: FDA-Public Use
  Company Number: None

PATIENT
  Sex: Male
  Weight: 80 kg

DRUGS (4)
  1. PIRFENIDONE [Suspect]
     Active Substance: PIRFENIDONE
     Indication: Idiopathic pulmonary fibrosis
     Dosage: 3 DOSAGE FORM, Q8H, 3X PER DAY 3 PIECES
     Route: 065
     Dates: start: 20230130, end: 20230303
  2. ACETAMINOPHEN [Suspect]
     Active Substance: ACETAMINOPHEN
     Indication: Pain
     Dosage: 1000 MILLIGRAM, Q8H, 3 X PER DAY 2 PIECES
     Route: 065
     Dates: start: 20170501
  3. RIVAROXABAN [Suspect]
     Active Substance: RIVAROXABAN
     Indication: Pulmonary embolism
     Dosage: 20 MILLIGRAM, QD, 1X PER DAY 20MG
     Route: 065
     Dates: start: 20220520
  4. DEXTROSE [Concomitant]
     Active Substance: DEXTROSE
     Dosage: UNK, SOLUTION FOR INFUSION, 200 MG/ML (MILLIGRA
     Route: 065

REACTIONS (1)
  - Acute hepatic failure [Fatal]
